FAERS Safety Report 18213642 (Version 1)
Quarter: 2020Q3

REPORT INFORMATION
  Report Type: Report from Study
  Country: US (occurrence: US)
  Receive Date: 20200831
  Receipt Date: 20200831
  Transmission Date: 20201103
  Serious: Yes (Death)
  Sender: FDA-Public Use
  Company Number: US-BAYER-2020-182559

PATIENT
  Age: 80 Year

DRUGS (1)
  1. ADEMPAS [Suspect]
     Active Substance: RIOCIGUAT
     Dosage: UNK
     Dates: start: 20200323

REACTIONS (1)
  - Death [Fatal]

NARRATIVE: CASE EVENT DATE: 20200816
